FAERS Safety Report 4291498-0 (Version None)
Quarter: 2004Q1

REPORT INFORMATION
  Report Type: 
  Country: None (occurrence: None)
  Receive Date: 20040211
  Receipt Date: 20030612
  Transmission Date: 20041129
  Serious: No
  Sender: FDA-Public Use
  Company Number: US-BRISTOL-MYERS SQUIBB COMPANY-12299681

PATIENT
  Age: 21 Month
  Sex: Male

DRUGS (2)
  1. CEFZIL [Suspect]
     Route: 048
     Dates: start: 20030519
  2. AMOXICILLIN [Concomitant]

REACTIONS (1)
  - TOOTH DISCOLOURATION [None]
